FAERS Safety Report 15134290 (Version 1)
Quarter: 2018Q3

REPORT INFORMATION
  Report Type: Spontaneous
  Country: BR (occurrence: BR)
  Receive Date: 20180712
  Receipt Date: 20180712
  Transmission Date: 20181010
  Serious: Yes (Other)
  Sender: FDA-Public Use
  Company Number: BR-TEVA-2018-BR-922879

PATIENT
  Sex: Male
  Weight: 88 kg

DRUGS (5)
  1. CORTISONAL 20 MG [Concomitant]
     Dosage: ON 13?MAR?2018, BEFORE THE PATIENT STARTED THE THIRD OXALIPLATIN BAG.
  2. VESICARE [Concomitant]
     Active Substance: SOLIFENACIN SUCCINATE
  3. TENADREN [Concomitant]
     Active Substance: HYDROCHLOROTHIAZIDE\PROPRANOLOL HYDROCHLORIDE
  4. AVASTIN [Concomitant]
     Active Substance: BEVACIZUMAB
  5. TEVAOXALI [Suspect]
     Active Substance: OXALIPLATIN
     Indication: COLON CANCER
     Dosage: 127,54 MILIGRAMS IN EACH 14 DAYS
     Route: 065

REACTIONS (6)
  - Back pain [Unknown]
  - Hyperaemia [Unknown]
  - Dermatitis allergic [Unknown]
  - Tremor [Unknown]
  - Pruritus [Unknown]
  - Pain [Unknown]
